FAERS Safety Report 15982821 (Version 8)
Quarter: 2020Q1

REPORT INFORMATION
  Report Type: Spontaneous
  Country: US (occurrence: US)
  Receive Date: 20190219
  Receipt Date: 20200210
  Transmission Date: 20200409
  Serious: Yes (Death, Life-Threatening, Hospitalization, Other)
  Sender: FDA-Public Use
  Company Number: US-ACTELION-A-NJ2019-186639

PATIENT
  Age: 78 Year
  Sex: Female
  Weight: 81.63 kg

DRUGS (24)
  1. ELIQUIS [Concomitant]
     Active Substance: APIXABAN
     Dosage: 5 MG
     Route: 048
  2. MIDODRINE [Concomitant]
     Active Substance: MIDODRINE
     Dosage: 10 MG WITH DIALYSIS
     Route: 048
  3. BISACODYL. [Concomitant]
     Active Substance: BISACODYL
     Dosage: 10 MG, QD
     Route: 054
  4. DUONEB [Concomitant]
     Active Substance: ALBUTEROL SULFATE\IPRATROPIUM BROMIDE
     Dosage: 0.5 / 0.25 (3) MG/DML (4 TIMES/DAY)
     Route: 055
  5. BROVANA [Concomitant]
     Active Substance: ARFORMOTEROL TARTRATE
     Dosage: 15 MCG/2ML, 2ML INH
     Route: 055
  6. BUDESONIDE. [Concomitant]
     Active Substance: BUDESONIDE
     Dosage: 0.25 MG/ML, BID
     Route: 055
  7. PANTOPRAZOLE [Concomitant]
     Active Substance: PANTOPRAZOLE
     Dosage: 40 MG, QD
  8. SULFACETAMIDE SODIUM. [Concomitant]
     Active Substance: SULFACETAMIDE SODIUM
     Dosage: 10 %, Q6HRS
  9. ASPIRIN. [Concomitant]
     Active Substance: ASPIRIN
     Dosage: 81 MG, QD
     Route: 048
  10. XIFAXAN [Concomitant]
     Active Substance: RIFAXIMIN
  11. METOPROLOL TARTRATE. [Concomitant]
     Active Substance: METOPROLOL TARTRATE
     Dosage: 50 MG, QD
  12. FERROUS SULFATE. [Concomitant]
     Active Substance: FERROUS SULFATE
     Dosage: 325 (65 FE)
     Route: 048
  13. TRAMADOL. [Concomitant]
     Active Substance: TRAMADOL
  14. GLIMEPIRIDE. [Concomitant]
     Active Substance: GLIMEPIRIDE
     Dosage: 4 MG, QD
     Route: 048
  15. VITAMIN C [Concomitant]
     Active Substance: ASCORBIC ACID
     Dosage: 1000 MG, QD
     Route: 048
  16. TRUEPLUS GLUCOSE [Concomitant]
  17. UPTRAVI [Suspect]
     Active Substance: SELEXIPAG
     Dosage: 1000 MCG
     Route: 048
     Dates: start: 20181029
  18. SILDENAFIL. [Concomitant]
     Active Substance: SILDENAFIL
     Indication: PULMONARY ARTERIAL HYPERTENSION
     Dosage: 20 MG, TID
     Route: 048
  19. DOCUSATE [Concomitant]
     Active Substance: DOCUSATE
     Dosage: 100 MG, BID
     Route: 048
  20. UPTRAVI [Suspect]
     Active Substance: SELEXIPAG
     Indication: PULMONARY ARTERIAL HYPERTENSION
     Dosage: 1600 MCG, BID
     Route: 048
     Dates: start: 20181029, end: 20191228
  21. SPIRONOLACTONE. [Concomitant]
     Active Substance: SPIRONOLACTONE
     Dosage: 25 MG, QD
     Route: 048
  22. HYDROCORTISONE ACETATE. [Concomitant]
     Active Substance: HYDROCORTISONE ACETATE
     Dosage: 25 MG, TID
     Route: 054
  23. ALLOPURINOL. [Concomitant]
     Active Substance: ALLOPURINOL
     Dosage: 100 MG, QD
     Route: 048
  24. FUROSEMIDE. [Concomitant]
     Active Substance: FUROSEMIDE
     Dosage: 20 MG, QD
     Route: 048

REACTIONS (12)
  - Respiratory arrest [Fatal]
  - Dialysis [Recovering/Resolving]
  - Dyspnoea [Unknown]
  - Haemorrhage [Recovering/Resolving]
  - Product dose omission [Unknown]
  - Transfusion [Recovering/Resolving]
  - Oedema peripheral [Unknown]
  - Renal failure [Recovering/Resolving]
  - Haemoglobin decreased [Recovering/Resolving]
  - Localised oedema [Unknown]
  - Wheezing [Unknown]
  - Viral infection [Fatal]

NARRATIVE: CASE EVENT DATE: 20190204
